FAERS Safety Report 14417737 (Version 1)
Quarter: 2018Q1

REPORT INFORMATION
  Report Type: Spontaneous
  Country: US (occurrence: US)
  Receive Date: 20180119
  Receipt Date: 20180119
  Transmission Date: 20180509
  Serious: Yes (Hospitalization, Disabling, Other)
  Sender: FDA-Public Use
  Company Number: None

PATIENT
  Sex: Female
  Weight: 76.5 kg

DRUGS (2)
  1. PROLIA [Suspect]
     Active Substance: DENOSUMAB
     Indication: BONE DISORDER
     Dosage: 1 INJECTION(S); MONTHLY; STOMACH INJECTIONS?
  2. VITAMINS [Concomitant]
     Active Substance: VITAMINS

REACTIONS (6)
  - Abscess [None]
  - Lower limb fracture [None]
  - Fall [None]
  - Pelvic fracture [None]
  - Tooth fracture [None]
  - Pain [None]

NARRATIVE: CASE EVENT DATE: 20150515
